FAERS Safety Report 4435533-5 (Version None)
Quarter: 2004Q3

REPORT INFORMATION
  Report Type: 
  Country: None (occurrence: None)
  Receive Date: 20040826
  Receipt Date: 20040816
  Transmission Date: 20050211
  Serious: Yes (Hospitalization)
  Sender: FDA-Public Use
  Company Number: 2004EU001540

PATIENT
  Age: 18 Year
  Sex: Male

DRUGS (3)
  1. FK506(TACROLIMUS) FORMULATION UNKNOWN [Suspect]
     Indication: RENAL TRANSPLANT
     Dosage: 8.00 MG, UNKNOWN/D
  2. PREDNISONE [Concomitant]
  3. MICOPHENOLATE [Concomitant]

REACTIONS (3)
  - CEREBROVASCULAR ACCIDENT [None]
  - METABOLIC DISORDER [None]
  - PARTIAL SEIZURES WITH SECONDARY GENERALISATION [None]
